FAERS Safety Report 8955198 (Version 2)
Quarter: 2012Q4

REPORT INFORMATION
  Report Type: 
  Country: US (occurrence: US)
  Receive Date: 20121210
  Receipt Date: 20121220
  Transmission Date: 20130627
  Serious: No
  Sender: FDA-Public Use
  Company Number: US-BIOGENIDEC-2012BI054639

PATIENT
  Age: 43 Year
  Sex: Male

DRUGS (2)
  1. TYSABRI [Suspect]
     Indication: MULTIPLE SCLEROSIS
     Route: 042
     Dates: start: 20111116, end: 20121023
  2. KLONOPIN [Concomitant]
     Indication: TREMOR

REACTIONS (2)
  - Diplopia [Not Recovered/Not Resolved]
  - Drug effect decreased [Recovered/Resolved]
